FAERS Safety Report 12168778 (Version 1)
Quarter: 2016Q1

REPORT INFORMATION
  Report Type: Spontaneous
  Country: NZ (occurrence: NZ)
  Receive Date: 20160310
  Receipt Date: 20160310
  Transmission Date: 20160526
  Serious: Yes (Other)
  Sender: FDA-Public Use
  Company Number: NZ-BAYER-2016-047369

PATIENT
  Sex: Female

DRUGS (1)
  1. MIRENA [Suspect]
     Active Substance: LEVONORGESTREL
     Dosage: 20 MCG/24HR, CONT
     Route: 015

REACTIONS (4)
  - Amenorrhoea [None]
  - Genital haemorrhage [None]
  - Hypomenorrhoea [None]
  - Uterine cancer [None]

NARRATIVE: CASE EVENT DATE: 20160308
